FAERS Safety Report 5947820-X (Version None)
Quarter: 2008Q4

REPORT INFORMATION
  Report Type: 
  Country: None (occurrence: None)
  Receive Date: 20081111
  Receipt Date: 20081007
  Transmission Date: 20090506
  Serious: Yes (Hospitalization)
  Sender: FDA-Public Use
  Company Number: US-BRISTOL-MYERS SQUIBB COMPANY-14367981

PATIENT
  Age: 72 Year
  Sex: Male
  Weight: 78 kg

DRUGS (6)
  1. CETUXIMAB [Suspect]
     Indication: PROSTATE CANCER METASTATIC
     Dosage: FIRST INFUSION ON 29-AUG-2008 760 MG ONCE. DRUG DELAYED AFTER 12-SEP-2008 TREATMENT.
     Route: 042
     Dates: start: 20080912, end: 20080912
  2. NOVANTRONE [Suspect]
     Indication: PROSTATE CANCER METASTATIC
     Dosage: DRUG DELAYED AFTER 29-AUG-2008 TREATMENT.
     Route: 042
     Dates: start: 20080829, end: 20080829
  3. CALCIUM [Concomitant]
     Indication: MINERAL SUPPLEMENTATION
     Route: 048
  4. CELEBREX [Concomitant]
     Indication: PAIN
     Route: 048
  5. PREDNISONE [Concomitant]
     Indication: PROSTATE CANCER
     Route: 048
  6. ZANTAC [Concomitant]
     Indication: GASTROOESOPHAGEAL REFLUX DISEASE
     Route: 048

REACTIONS (8)
  - DIVERTICULUM [None]
  - DIZZINESS [None]
  - GASTROINTESTINAL HAEMORRHAGE [None]
  - HAEMORRHOIDS [None]
  - LOSS OF CONSCIOUSNESS [None]
  - PROTHROMBIN TIME PROLONGED [None]
  - PYELONEPHRITIS [None]
  - RENAL DISORDER [None]
